FAERS Safety Report 17127421 (Version 1)
Quarter: 2019Q4

REPORT INFORMATION
  Report Type: Spontaneous
  Country: JP (occurrence: JP)
  Receive Date: 20191209
  Receipt Date: 20191209
  Transmission Date: 20200122
  Serious: Yes (Hospitalization, Other)
  Sender: FDA-Public Use
  Company Number: JP-ACCORD-164191

PATIENT
  Age: 55 Year
  Sex: Male
  Weight: 84 kg

DRUGS (2)
  1. DEXMEDETOMIDINE. [Suspect]
     Active Substance: DEXMEDETOMIDINE
     Indication: SEDATION
     Dosage: 4 MG/KG/H THEN MAINTENANCE-DOSE (0.4 MG/KG/H)
     Route: 042
  2. FENTANYL. [Suspect]
     Active Substance: FENTANYL
     Indication: SEDATION
     Dosage: FIRST SESSION (4 MG/KG/H FOR THE INITIAL 15 MIN FOLLOWED BY A MAINTENANCE DOSE OF 0.4 MG/KG/H)

REACTIONS (1)
  - Arteriospasm coronary [Recovered/Resolved]
